FAERS Safety Report 22849762 (Version 3)
Quarter: 2025Q2

REPORT INFORMATION
  Report Type: Spontaneous
  Country: US (occurrence: US)
  Receive Date: 20230822
  Receipt Date: 20250519
  Transmission Date: 20250716
  Serious: Yes (Other)
  Sender: TEVA
  Company Number: US-TEVA-2023-US-2918622

PATIENT
  Age: 40 Year
  Sex: Female

DRUGS (2)
  1. MORPHINE [Suspect]
     Active Substance: MORPHINE
     Indication: Abdominal pain
     Route: 065
  2. PIPERACILLIN AND TAZOBACTAM [Concomitant]
     Active Substance: PIPERACILLIN SODIUM\TAZOBACTAM SODIUM
     Indication: Product used for unknown indication
     Route: 065

REACTIONS (4)
  - Sphincter of Oddi dysfunction [Recovering/Resolving]
  - Hypertransaminasaemia [Recovering/Resolving]
  - Pancreatitis acute [Recovering/Resolving]
  - Paradoxical drug reaction [Recovering/Resolving]
